FAERS Safety Report 14472585 (Version 1)
Quarter: 2018Q1

REPORT INFORMATION
  Report Type: Spontaneous
  Country: JP (occurrence: JP)
  Receive Date: 20180201
  Receipt Date: 20180201
  Transmission Date: 20180509
  Serious: Yes (Other)
  Sender: FDA-Public Use
  Company Number: PHJP2018JP002085

PATIENT
  Sex: Female

DRUGS (1)
  1. LOCHOL [Suspect]
     Active Substance: FLUVASTATIN SODIUM
     Indication: PRODUCT USED FOR UNKNOWN INDICATION
     Dosage: UNK
     Route: 048
     Dates: start: 20171016, end: 20171121

REACTIONS (9)
  - Pyrexia [Recovering/Resolving]
  - Myalgia [Unknown]
  - Pyrexia [Recovered/Resolved]
  - Visceral pain [Unknown]
  - Muscular weakness [Unknown]
  - Blood pressure increased [Unknown]
  - Cough [Recovered/Resolved]
  - Choking [Unknown]
  - Heart rate increased [Unknown]

NARRATIVE: CASE EVENT DATE: 20171230
